FAERS Safety Report 9035917 (Version 1)
Quarter: 2013Q1

REPORT INFORMATION
  Report Type: Report from Study
  Country: US (occurrence: US)
  Receive Date: 20130129
  Receipt Date: 20130129
  Transmission Date: 20140127
  Serious: Yes (Other)
  Sender: FDA-Public Use
  Company Number: US-ABBOTT-12P-163-0917910-00

PATIENT
  Age: 45 Year
  Sex: Female

DRUGS (23)
  1. HUMIRA 40 MG/0.8 ML PEN [Suspect]
     Indication: RHEUMATOID ARTHRITIS
     Dates: end: 20111214
  2. HUMIRA 40 MG/0.8 ML PEN [Suspect]
     Dates: start: 20120106
  3. CYMBALTA [Concomitant]
     Indication: FIBROMYALGIA
     Dosage: DAILY
  4. CYMBALTA [Concomitant]
     Indication: DEPRESSION
  5. DOCUSATE SODIUM [Concomitant]
     Indication: PRODUCT USED FOR UNKNOWN INDICATION
  6. RANITIDINE [Concomitant]
     Indication: GASTROOESOPHAGEAL REFLUX DISEASE
  7. OMEPRAZOLE [Concomitant]
     Indication: GASTROOESOPHAGEAL REFLUX DISEASE
  8. SAVELLA [Concomitant]
     Indication: DEPRESSION
  9. ESTRADIOL [Concomitant]
     Indication: HYSTERECTOMY
  10. FOLIC ACID [Concomitant]
     Indication: PRODUCT USED FOR UNKNOWN INDICATION
  11. METHOTREXATE [Concomitant]
     Indication: RHEUMATOID ARTHRITIS
  12. FERROUS SULFATE [Concomitant]
     Indication: ANAEMIA
  13. IMITREX [Concomitant]
     Indication: MIGRAINE
  14. NAPROXEN [Concomitant]
     Indication: INFLAMMATION
  15. DULERA [Concomitant]
     Indication: BRONCHITIS CHRONIC
     Dosage: IN THE MORNING AND IN THE EVENING
  16. ALBUTEROL [Concomitant]
     Indication: PRODUCT USED FOR UNKNOWN INDICATION
     Dosage: AS REQUIRED
  17. ALBUTEROL SULFATE AND IPRATROPIUM BROMIDE [Concomitant]
     Indication: RESPIRATORY TRACT CONGESTION
     Dosage: NEBULIZER
  18. DIAZEPAM [Concomitant]
     Indication: MUSCLE SPASMS
  19. OXYCONTIN [Concomitant]
     Indication: PAIN
     Dosage: AS REQUIRED
  20. OXYCODONE HCL [Concomitant]
     Indication: BREAKTHROUGH PAIN
     Dosage: 1-2 TABLETS AS REQUIRED, 1 IN 6 HOURS
  21. BUTAB/ACET/CAFFEINE [Concomitant]
     Indication: HEADACHE
     Dosage: 50/325/40 AS REQUIRED, UP TO 3 IN 1 D
     Route: 048
  22. VITAMIN B12 [Concomitant]
     Indication: VITAMIN B12 DEFICIENCY
  23. AMBIEN [Concomitant]
     Indication: INSOMNIA
     Dosage: AT NOC

REACTIONS (9)
  - Joint arthroplasty [Recovering/Resolving]
  - Pain in extremity [Recovering/Resolving]
  - Nasopharyngitis [Recovering/Resolving]
  - Respiratory tract congestion [Recovering/Resolving]
  - Productive cough [Recovering/Resolving]
  - Sputum discoloured [Recovering/Resolving]
  - Pyrexia [Recovering/Resolving]
  - Migraine [Unknown]
  - Arthralgia [Not Recovered/Not Resolved]
